FAERS Safety Report 5913241-9 (Version None)
Quarter: 2008Q4

REPORT INFORMATION
  Report Type: 
  Country: None (occurrence: None)
  Receive Date: 20081009
  Receipt Date: 20081008
  Transmission Date: 20090506
  Serious: Yes (Other)
  Sender: FDA-Public Use
  Company Number: DE-BRISTOL-MYERS SQUIBB COMPANY-14340160

PATIENT
  Age: 48 Year
  Sex: Female
  Weight: 76 kg

DRUGS (5)
  1. CISPLATIN [Suspect]
     Indication: BRONCHIAL CARCINOMA
     Dosage: CYCLE 4 ON 30JAN08, DOSE 139.54MG
     Route: 065
     Dates: start: 20071112
  2. ALIMTA [Suspect]
     Indication: BRONCHIAL CARCINOMA
     Dosage: CYCLE 4 ON 30JAN08 AT 929.19MG
     Route: 065
     Dates: start: 20071112
  3. ERLOTINIB [Concomitant]
     Indication: BRONCHIAL CARCINOMA
     Dates: end: 20080520
  4. THYRONAJOD [Concomitant]
     Indication: HYPERTHYROIDISM
  5. PAROXETINE HCL [Concomitant]
     Indication: PANIC DISORDER

REACTIONS (2)
  - DENTAL CARIES [None]
  - DRY MOUTH [None]
